FAERS Safety Report 10380881 (Version 1)
Quarter: 2014Q3

REPORT INFORMATION
  Report Type: Spontaneous
  Country: NL (occurrence: NL)
  Receive Date: 20140813
  Receipt Date: 20140813
  Transmission Date: 20150326
  Serious: Yes (Life-Threatening, Hospitalization)
  Sender: FDA-Public Use
  Company Number: NL-TEVA-499631ISR

PATIENT
  Age: 47 Year
  Sex: Female
  Weight: 85 kg

DRUGS (5)
  1. METOPROLOL TABLET  100MG [Suspect]
     Active Substance: METOPROLOL
     Indication: HYPERTENSION
     Dosage: ONCE DAILY ONE PIECE, EXTRA INFO: PROLONGED RELEASE
     Route: 048
     Dates: start: 2013
  2. PERINDOPRIL TABLET  2,5MG (ARGININE) [Suspect]
     Active Substance: PERINDOPRIL ARGININE
     Indication: HYPERTENSION
     Dosage: ONCE DAILY ONE PIECE
     Route: 048
     Dates: start: 2013, end: 20140725
  3. IBUPROFEN. [Interacting]
     Active Substance: IBUPROFEN
     Indication: PAIN
     Dosage: UNKNOWN
     Route: 048
     Dates: start: 2013, end: 20140725
  4. SYMBICORT TURBUHALER INHALPDR 100/6MCG/DO  60DO [Concomitant]
     Dosage: UNKNOWN
     Route: 055
     Dates: start: 2014
  5. RELPAX TABLET FILMOMHULD 40MG [Concomitant]
     Dosage: ONCE DAILY ONE PIECE, EXTRA INFO: AS REQUIRED
     Route: 048

REACTIONS (2)
  - Bronchospasm [Recovering/Resolving]
  - Drug interaction [Unknown]

NARRATIVE: CASE EVENT DATE: 20140725
